FAERS Safety Report 6409389-5 (Version None)
Quarter: 2009Q4

REPORT INFORMATION
  Report Type: 
  Country: None (occurrence: None)
  Receive Date: 20091019
  Receipt Date: 20091019
  Transmission Date: 20100525
  Serious: Yes (Hospitalization)
  Sender: FDA-Public Use
  Company Number: None

PATIENT
  Sex: Male
  Weight: 70.67 kg

DRUGS (2)
  1. CARBOPLATIN [Suspect]
     Dosage: 868 MG
  2. TAXOL [Suspect]
     Dosage: 564 MG

REACTIONS (7)
  - ASTHENIA [None]
  - FALL [None]
  - FATIGUE [None]
  - HYPOPHAGIA [None]
  - OESOPHAGEAL ULCER [None]
  - OESOPHAGITIS [None]
  - WEIGHT DECREASED [None]
